FAERS Safety Report 15907462 (Version 1)
Quarter: 2019Q1

REPORT INFORMATION
  Report Type: Spontaneous
  Country: CN (occurrence: CN)
  Receive Date: 20190204
  Receipt Date: 20190204
  Transmission Date: 20190417
  Serious: Yes (Hospitalization)
  Sender: FDA-Public Use
  Company Number: CN-PFIZER INC-2019039444

PATIENT
  Age: 63 Year
  Sex: Male
  Weight: 80 kg

DRUGS (2)
  1. NORVASC [Suspect]
     Active Substance: AMLODIPINE BESYLATE
     Indication: HYPERTENSION
     Dosage: 5 MG, 1X/DAY (5 MG QD)
     Route: 048
     Dates: start: 20180607, end: 20181204
  2. METOPROLOL TARTRATE. [Concomitant]
     Active Substance: METOPROLOL TARTRATE
     Dosage: 25 MG, 1X/DAY (25 MG QD)

REACTIONS (3)
  - Condition aggravated [Unknown]
  - Oedema peripheral [Recovering/Resolving]
  - Cerebral ischaemia [Unknown]

NARRATIVE: CASE EVENT DATE: 2018
